FAERS Safety Report 8163805-X (Version None)
Quarter: 2012Q1

REPORT INFORMATION
  Report Type: 
  Country: None (occurrence: None)
  Receive Date: 20120224
  Receipt Date: 20120221
  Transmission Date: 20120608
  Serious: Yes (Hospitalization, Other)
  Sender: FDA-Public Use
  Company Number: US-PFIZER INC-2011168349

PATIENT
  Sex: Male

DRUGS (5)
  1. FLEXERIL [Concomitant]
     Indication: MUSCLE RELAXANT THERAPY
     Dosage: UNK
     Dates: start: 19880101
  2. ZOCOR [Concomitant]
     Indication: BLOOD CHOLESTEROL
     Dosage: UNK
     Dates: start: 20050101
  3. CHANTIX [Suspect]
     Indication: SMOKING CESSATION THERAPY
     Dosage: STEP DOWN PACK
     Dates: start: 20100415, end: 20100504
  4. TEMAZEPAM [Concomitant]
     Indication: SLEEP DISORDER
     Dosage: UNK
     Dates: start: 20020101
  5. OXYCODONE [Concomitant]
     Indication: PAIN
     Dosage: UNK
     Dates: start: 19770101

REACTIONS (9)
  - INTENTIONAL OVERDOSE [None]
  - ANGER [None]
  - PANIC ATTACK [None]
  - INSOMNIA [None]
  - MENTAL DISORDER [None]
  - DEPRESSION [None]
  - SUICIDE ATTEMPT [None]
  - ANXIETY [None]
  - ABNORMAL DREAMS [None]
